FAERS Safety Report 9241645 (Version 8)
Quarter: 2014Q3

REPORT INFORMATION
  Report Type: Spontaneous
  Country: US (occurrence: US)
  Receive Date: 20130419
  Receipt Date: 20140820
  Transmission Date: 20150326
  Serious: Yes (Hospitalization, Other)
  Sender: FDA-Public Use
  Company Number: US-009507513-1304USA005782

PATIENT
  Sex: Female

DRUGS (7)
  1. VITAMIN E [Concomitant]
     Active Substance: .ALPHA.-TOCOPHEROL
     Dosage: UNK
  2. THERAPY UNSPECIFIED [Concomitant]
     Active Substance: UNSPECIFIED INGREDIENT
  3. REBETOL [Suspect]
     Active Substance: RIBAVIRIN
     Indication: HEPATITIS C
     Dosage: UNK UNK, BID
     Route: 048
     Dates: start: 20130318, end: 20130901
  4. PEGINTRON [Suspect]
     Active Substance: PEGINTERFERON ALFA-2B
     Indication: HEPATITIS C
     Dosage: UNK UNK, QW
     Dates: start: 20130318, end: 2013
  5. PEGINTRON [Suspect]
     Active Substance: PEGINTERFERON ALFA-2B
     Dosage: 80 MICROGRAM, Q7DAYS
     Dates: start: 2013, end: 20130901
  6. VITAMIN D [Concomitant]
     Active Substance: CHOLECALCIFEROL
     Dosage: UNK
  7. VICTRELIS [Suspect]
     Active Substance: BOCEPREVIR
     Indication: HEPATITIS C
     Dosage: DAILY
     Route: 048
     Dates: start: 20130415, end: 20130901

REACTIONS (25)
  - Muscle spasms [Unknown]
  - Platelet count decreased [Unknown]
  - Anaemia [Unknown]
  - Fatigue [Unknown]
  - Insomnia [Unknown]
  - Blood sodium decreased [Unknown]
  - Toothache [Unknown]
  - Amnesia [Unknown]
  - Abdominal distension [Unknown]
  - Hypoaesthesia [Unknown]
  - Abasia [Unknown]
  - Muscle strain [Unknown]
  - Transfusion [Unknown]
  - Confusional state [Unknown]
  - Dyspnoea [Unknown]
  - Vomiting [Unknown]
  - Blood sodium increased [Unknown]
  - White blood cell count decreased [Unknown]
  - Lymphadenopathy [Unknown]
  - Back pain [Unknown]
  - Pain [Unknown]
  - Dehydration [Unknown]
  - Aggression [Unknown]
  - Metabolic disorder [Unknown]
  - Nausea [Unknown]

NARRATIVE: CASE EVENT DATE: 2013
